FAERS Safety Report 7338527-5 (Version None)
Quarter: 2011Q1

REPORT INFORMATION
  Report Type: 
  Country: None (occurrence: None)
  Receive Date: 20110308
  Receipt Date: 20110303
  Transmission Date: 20110831
  Serious: Yes (Hospitalization)
  Sender: FDA-Public Use
  Company Number: US-ABBOTT-11P-163-0709219-00

PATIENT
  Sex: Male

DRUGS (1)
  1. HUMIRA [Suspect]
     Indication: CROHN'S DISEASE
     Dates: start: 20101201

REACTIONS (4)
  - RESPIRATORY TRACT CONGESTION [None]
  - PYREXIA [None]
  - INFLUENZA [None]
  - HAEMOPTYSIS [None]
